FAERS Safety Report 9637661 (Version 1)
Quarter: 2013Q4

REPORT INFORMATION
  Report Type: Spontaneous
  Country: SG (occurrence: SG)
  Receive Date: 20131022
  Receipt Date: 20131022
  Transmission Date: 20140711
  Serious: Yes (Other)
  Sender: FDA-Public Use
  Company Number: SG-PFIZER INC-2013294064

PATIENT
  Age: 66 Year
  Sex: Female

DRUGS (1)
  1. GLIPIZIDE [Suspect]
     Dosage: UNK

REACTIONS (1)
  - Abdominal discomfort [Unknown]
